FAERS Safety Report 25137045 (Version 2)
Quarter: 2025Q2

REPORT INFORMATION
  Report Type: Report from Study
  Country: KR (occurrence: KR)
  Receive Date: 20250328
  Receipt Date: 20250411
  Transmission Date: 20250716
  Serious: Yes (Hospitalization, Other)
  Sender: APELLIS PHARMACEUTICALS
  Company Number: KR-BIOVITRUM-2025-KR-004085

PATIENT

DRUGS (1)
  1. EMPAVELI [Suspect]
     Active Substance: PEGCETACOPLAN
     Indication: Paroxysmal nocturnal haemoglobinuria
     Dosage: 20 MG(1080MG SUBCUTANEOUSLY TWICE A WEEK (DAY 1 AND 4))
     Route: 058
     Dates: start: 20250213

REACTIONS (3)
  - Pneumonia [Recovering/Resolving]
  - Diarrhoea [Unknown]
  - Pulmonary oedema [Unknown]
